FAERS Safety Report 4403386-7 (Version None)
Quarter: 2004Q3

REPORT INFORMATION
  Report Type: 
  Country: None (occurrence: None)
  Receive Date: 20040715
  Receipt Date: 20040706
  Transmission Date: 20050211
  Serious: Yes (Hospitalization, Other)
  Sender: FDA-Public Use
  Company Number: 2004045383

PATIENT
  Age: 72 Year
  Sex: Female
  Weight: 74.8435 kg

DRUGS (4)
  1. LIPITOR [Suspect]
     Indication: BLOOD CHOLESTEROL INCREASED
     Dosage: 10 MG (10 MG, 1 IN 1 D), ORAL
     Route: 048
  2. LOTREL [Suspect]
     Indication: BLOOD PRESSURE
     Dosage: ORAL
     Route: 048
     Dates: end: 20040301
  3. ANTIHYPERTENSIVES (ANTIHYPERTENSIVES) [Concomitant]
  4. SERTRALINE HCL [Concomitant]

REACTIONS (7)
  - BURSITIS [None]
  - COUGH [None]
  - IATROGENIC INJURY [None]
  - TENDON DISORDER [None]
  - TENDON RUPTURE [None]
  - THYROID DISORDER [None]
  - URINARY TRACT INFECTION [None]
